FAERS Safety Report 13123789 (Version 1)
Quarter: 2017Q1

REPORT INFORMATION
  Report Type: Report from Study
  Country: CO (occurrence: CO)
  Receive Date: 20170118
  Receipt Date: 20170118
  Transmission Date: 20170428
  Serious: Yes (Death, Hospitalization, Other)
  Sender: FDA-Public Use
  Company Number: CO-AMGEN-COLSL2017006350

PATIENT
  Age: 64 Year
  Sex: Female

DRUGS (1)
  1. VECTIBIX [Suspect]
     Active Substance: PANITUMUMAB
     Indication: COLORECTAL CANCER METASTATIC
     Dosage: UNK
     Route: 065

REACTIONS (4)
  - Death [Fatal]
  - Fluid retention [Unknown]
  - Metastases to liver [Unknown]
  - Weight decreased [Unknown]

NARRATIVE: CASE EVENT DATE: 20161202
